FAERS Safety Report 11785856 (Version 1)
Quarter: 2015Q4

REPORT INFORMATION
  Report Type: Spontaneous
  Country: US (occurrence: US)
  Receive Date: 20151130
  Receipt Date: 20151130
  Transmission Date: 20160305
  Serious: No
  Sender: FDA-Public Use
  Company Number: US-BAYER-2015-478807

PATIENT
  Age: 68 Year
  Sex: Female
  Weight: 122.45 kg

DRUGS (1)
  1. OXYTROL FOR WOMEN [Suspect]
     Active Substance: OXYBUTYNIN
     Indication: HYPERTONIC BLADDER
     Dosage: 1 DF, ONCE EVERY 4 DAYS AS DIRECTED ON THE LABELING
     Route: 061
     Dates: start: 2015

REACTIONS (2)
  - Rash erythematous [Not Recovered/Not Resolved]
  - Rash [Not Recovered/Not Resolved]

NARRATIVE: CASE EVENT DATE: 201509
